FAERS Safety Report 7209526-9 (Version None)
Quarter: 2011Q1

REPORT INFORMATION
  Report Type: 
  Country: None (occurrence: None)
  Receive Date: 20110103
  Receipt Date: 20110103
  Transmission Date: 20110831
  Serious: Yes (Hospitalization)
  Sender: FDA-Public Use
  Company Number: None

PATIENT
  Age: 86 Year
  Sex: Male
  Weight: 83 kg

DRUGS (2)
  1. GLIPIZIDE [Suspect]
     Indication: DIABETES MELLITUS
     Dosage: 5 MG BID PO
     Route: 048
     Dates: start: 20090908
  2. KETOCONAZOLE [Suspect]
     Dosage: 400 MG TID PO
     Route: 048
     Dates: start: 20100815

REACTIONS (3)
  - HYPOGLYCAEMIA [None]
  - DELIRIUM [None]
  - CONFUSIONAL STATE [None]
